FAERS Safety Report 4454354-0 (Version None)
Quarter: 2004Q3

REPORT INFORMATION
  Report Type: 
  Country: None (occurrence: None)
  Receive Date: 20040920
  Receipt Date: 20030923
  Transmission Date: 20050211
  Serious: Yes (Hospitalization, Disabling)
  Sender: FDA-Public Use
  Company Number: US-MERCK-0309USA02507

PATIENT
  Age: 76 Year
  Sex: Female

DRUGS (3)
  1. VIOXX [Suspect]
     Indication: RHEUMATOID ARTHRITIS
     Route: 048
     Dates: start: 20010501, end: 20010501
  2. VIOXX [Suspect]
     Route: 048
     Dates: start: 19991005, end: 19991011
  3. VIOXX [Suspect]
     Route: 048
     Dates: start: 19991012, end: 20010501

REACTIONS (47)
  - ALOPECIA [None]
  - ANAEMIA [None]
  - ANOREXIA [None]
  - ARTHRALGIA [None]
  - ARTHROPATHY [None]
  - ASTHMA [None]
  - ATELECTASIS [None]
  - BLOOD LACTATE DEHYDROGENASE INCREASED [None]
  - CARDIAC FAILURE CONGESTIVE [None]
  - CARDIOMEGALY [None]
  - CEREBROVASCULAR ACCIDENT [None]
  - CHEST PAIN [None]
  - CHRONIC OBSTRUCTIVE AIRWAYS DISEASE [None]
  - COLITIS ULCERATIVE [None]
  - CONSTIPATION [None]
  - COUGH [None]
  - CREPITATIONS [None]
  - DEEP VEIN THROMBOSIS [None]
  - DEPRESSION [None]
  - DIFFICULTY IN WALKING [None]
  - DRUG INTERACTION [None]
  - DYSARTHRIA [None]
  - DYSPNOEA [None]
  - FALL [None]
  - HEADACHE [None]
  - HEMIPARESIS [None]
  - HYPERTONIA [None]
  - HYPOAESTHESIA [None]
  - INSOMNIA [None]
  - IRON DEFICIENCY ANAEMIA [None]
  - MUSCLE CRAMP [None]
  - OEDEMA PERIPHERAL [None]
  - ORTHOPNOEA [None]
  - PARAESTHESIA [None]
  - PERICARDIAL EFFUSION [None]
  - PHARYNGOLARYNGEAL PAIN [None]
  - PNEUMONIA [None]
  - POSTMENOPAUSAL HAEMORRHAGE [None]
  - PULMONARY CONGESTION [None]
  - PULMONARY EMBOLISM [None]
  - PULMONARY HYPERTENSION [None]
  - RECTAL ULCER [None]
  - REFLUX OESOPHAGITIS [None]
  - RENAL FAILURE [None]
  - TREMOR [None]
  - WEIGHT DECREASED [None]
  - WHEEZING [None]
